FAERS Safety Report 5852948-9 (Version None)
Quarter: 2008Q3

REPORT INFORMATION
  Report Type: 
  Country: None (occurrence: None)
  Receive Date: 20080814
  Receipt Date: 20080709
  Transmission Date: 20090109
  Serious: No
  Sender: FDA-Public Use
  Company Number: WAES 0807USA01624

PATIENT

DRUGS (1)
  1. ISENTRESS [Suspect]

REACTIONS (1)
  - LIVER FUNCTION TEST ABNORMAL [None]
